FAERS Safety Report 12187855 (Version 1)
Quarter: 2016Q1

REPORT INFORMATION
  Report Type: Spontaneous
  Country: US (occurrence: None)
  Receive Date: 20160316
  Receipt Date: 20160316
  Transmission Date: 20160526
  Serious: Yes (Other)
  Sender: FDA-Public Use
  Company Number: None

PATIENT
  Age: 56 Year
  Sex: Female
  Weight: 84.82 kg

DRUGS (8)
  1. NALOXONE [Concomitant]
     Active Substance: NALOXONE
  2. LISINOPRIL. [Concomitant]
     Active Substance: LISINOPRIL
  3. EMBEDA [Suspect]
     Active Substance: MORPHINE SULFATE\NALTREXONE HYDROCHLORIDE
     Indication: DRUG ABUSE
     Dosage: 1
     Route: 048
  4. MORPHINE SULFATE EXTENDED-RELEASE [Concomitant]
     Active Substance: MORPHINE SULFATE
  5. GABAPENTIN. [Concomitant]
     Active Substance: GABAPENTIN
  6. MORPHINE IR [Concomitant]
     Active Substance: MORPHINE
  7. TRAZODONE [Concomitant]
     Active Substance: TRAZODONE HYDROCHLORIDE
  8. MULTIVITAMIN [Concomitant]
     Active Substance: VITAMINS

REACTIONS (4)
  - Diarrhoea [None]
  - Rhinorrhoea [None]
  - Drug withdrawal syndrome [None]
  - Nausea [None]

NARRATIVE: CASE EVENT DATE: 20160315
